FAERS Safety Report 4698671-8 (Version None)
Quarter: 2005Q2

REPORT INFORMATION
  Report Type: 
  Country: None (occurrence: None)
  Receive Date: 20050622
  Receipt Date: 20050408
  Transmission Date: 20051028
  Serious: No
  Sender: FDA-Public Use
  Company Number: SU-2005-003412

PATIENT
  Age: 59 Year
  Sex: Female
  Weight: 81.6475 kg

DRUGS (1)
  1. BENICAR HCT [Suspect]
     Indication: HYPERTENSION
     Dosage: 40.25 MG QD PO
     Route: 048
     Dates: start: 20050407, end: 20050408

REACTIONS (6)
  - DIARRHOEA [None]
  - FATIGUE [None]
  - FEELING HOT [None]
  - HYPOTHERMIA [None]
  - MALAISE [None]
  - VOMITING [None]
